FAERS Safety Report 4524123-1 (Version None)
Quarter: 2005Q1

REPORT INFORMATION
  Report Type: 
  Country: None (occurrence: None)
  Receive Date: 20041119
  Receipt Date: 20041020
  Transmission Date: 20050727
  Serious: No
  Sender: FDA-Public Use
  Company Number: PHEH2004US04325

PATIENT
  Age: 38 Year
  Sex: Female
  Weight: 50.3 kg

DRUGS (2)
  1. ZELNORM [Suspect]
     Indication: IRRITABLE BOWEL SYNDROME
     Dosage: 6 MG, QD, ORAL
     Route: 048
     Dates: start: 20040201
  2. TRINESSA (NORGESTIMATE, ETHINYL ESTRADIOL) TABLET [Suspect]
     Indication: ORAL CONTRACEPTION
     Dosage: ONE TAB, DAILY, ORAL
     Route: 048
     Dates: start: 20040319

REACTIONS (2)
  - ABDOMINAL PAIN [None]
  - METRORRHAGIA [None]
